FAERS Safety Report 5195080-2 (Version None)
Quarter: 2006Q4

REPORT INFORMATION
  Report Type: 
  Country: None (occurrence: None)
  Receive Date: 20061229
  Receipt Date: 20061215
  Transmission Date: 20070319
  Serious: Yes (Hospitalization)
  Sender: FDA-Public Use
  Company Number: UA-SHR-UA-2006-039887

PATIENT
  Age: 53 Year
  Sex: Female
  Weight: 84 kg

DRUGS (4)
  1. FLUDARABINE PHOSPHATE (SH L 573) [Suspect]
     Dosage: UNK, UNK
     Route: 042
     Dates: start: 20060904, end: 20061116
  2. MABCAMPATH 30/1ML [Suspect]
     Dosage: UNK, UNK
     Route: 042
     Dates: start: 20060828, end: 20061116
  3. COTRIM D.S. [Concomitant]
     Route: 048
     Dates: start: 20061009
  4. ACYCLOVIR [Concomitant]
     Indication: ANTIVIRAL PROPHYLAXIS
     Route: 048
     Dates: start: 20061009

REACTIONS (2)
  - PERICARDITIS [None]
  - PYELONEPHRITIS ACUTE [None]
